FAERS Safety Report 7941288-X (Version None)
Quarter: 2011Q4

REPORT INFORMATION
  Report Type: 
  Country: None (occurrence: None)
  Receive Date: 20111128
  Receipt Date: 20111122
  Transmission Date: 20120403
  Serious: No
  Sender: FDA-Public Use
  Company Number: US-BAYER-2011-112300

PATIENT
  Age: 51 Year
  Sex: Male

DRUGS (7)
  1. LISINOPRIL [Concomitant]
  2. ORAMORPH SR [Concomitant]
  3. ACETAMINOPHEN W/ CODEINE [Concomitant]
  4. VERAPAMIL [Concomitant]
  5. ALBUTEROL [Concomitant]
  6. SORAFENIB (RAF KINASE INHIBITOR) [Suspect]
     Indication: METASTATIC RENAL CELL CARCINOMA
     Dosage: 400 MG, BID
     Route: 048
  7. ASPIRIN [Concomitant]

REACTIONS (2)
  - CHLORACNE [None]
  - DRUG ERUPTION [None]
